FAERS Safety Report 14435804 (Version 2)
Quarter: 2018Q1

REPORT INFORMATION
  Report Type: Report from Study
  Country: US (occurrence: US)
  Receive Date: 20180125
  Receipt Date: 20180214
  Transmission Date: 20180509
  Serious: Yes (Disabling, Other)
  Sender: FDA-Public Use
  Company Number: US-AMGEN-USASL2018008023

PATIENT
  Age: 53 Year
  Sex: Male

DRUGS (1)
  1. ENBREL [Suspect]
     Active Substance: ETANERCEPT
     Indication: PSORIASIS
     Dosage: 50 MG, QWK
     Route: 058

REACTIONS (10)
  - Ulcer [Unknown]
  - Rash papular [Unknown]
  - Road traffic accident [Unknown]
  - Disability [Unknown]
  - Blood testosterone decreased [Unknown]
  - Head injury [Unknown]
  - Impaired healing [Unknown]
  - Memory impairment [Unknown]
  - Application site irritation [Unknown]
  - Alopecia [Unknown]
